FAERS Safety Report 7964347-4 (Version None)
Quarter: 2011Q4

REPORT INFORMATION
  Report Type: 
  Country: None (occurrence: None)
  Receive Date: 20111208
  Receipt Date: 20111128
  Transmission Date: 20120403
  Serious: Yes (Hospitalization)
  Sender: FDA-Public Use
  Company Number: US-BAYER-201038727NA

PATIENT
  Age: 37 Year
  Sex: Female
  Weight: 93 kg

DRUGS (6)
  1. TYLENOL COLD [Concomitant]
     Indication: NASOPHARYNGITIS
     Dosage: UNK
     Route: 048
     Dates: start: 20040130, end: 20040207
  2. HALCION [Concomitant]
     Dosage: UNK
     Route: 048
     Dates: start: 20010701, end: 20040101
  3. COMBIVENT [Concomitant]
     Indication: BRONCHITIS
     Dosage: UNK
     Route: 048
     Dates: start: 20040130, end: 20040207
  4. CEFTIN [Concomitant]
     Indication: BRONCHITIS
     Dosage: UNK
     Route: 048
  5. YASMIN [Suspect]
     Indication: CONTRACEPTION
     Route: 048
     Dates: start: 20031202, end: 20040207
  6. SINEMET [Concomitant]
     Dosage: UNK
     Route: 048
     Dates: start: 20010701, end: 20040101

REACTIONS (1)
  - CEREBROVASCULAR ACCIDENT [None]
